FAERS Safety Report 6117260-1 (Version None)
Quarter: 2009Q1

REPORT INFORMATION
  Report Type: 
  Country: None (occurrence: None)
  Receive Date: 20090314
  Receipt Date: 20090112
  Transmission Date: 20090719
  Serious: No
  Sender: FDA-Public Use
  Company Number: US-ABBOTT-09P-163-0497403-00

PATIENT
  Sex: Female
  Weight: 66.738 kg

DRUGS (3)
  1. HUMIRA [Suspect]
     Indication: PSORIASIS
     Route: 058
     Dates: start: 20081017, end: 20081130
  2. HUMIRA [Suspect]
     Indication: PSORIATIC ARTHROPATHY
  3. VITAMINS [Concomitant]
     Indication: VITAMIN SUPPLEMENTATION
     Route: 048

REACTIONS (2)
  - MALAISE [None]
  - RESPIRATORY TRACT INFECTION [None]
